FAERS Safety Report 18819278 (Version 1)
Quarter: 2021Q1

REPORT INFORMATION
  Report Type: Spontaneous
  Country: US (occurrence: US)
  Receive Date: 20210201
  Receipt Date: 20210201
  Transmission Date: 20210419
  Serious: Yes (Hospitalization, Other)
  Sender: FDA-Public Use
  Company Number: US-BAYER-2021-034625

PATIENT
  Age: 72 Year
  Sex: Female

DRUGS (1)
  1. GADAVIST [Suspect]
     Active Substance: GADOBUTROL
     Indication: MAGNETIC RESONANCE IMAGING
     Dosage: 6 ML
     Dates: start: 20210120, end: 20210120

REACTIONS (3)
  - Respiratory distress [None]
  - Anaphylactic reaction [None]
  - Cyanosis [None]

NARRATIVE: CASE EVENT DATE: 20210120
